FAERS Safety Report 10170028 (Version 1)
Quarter: 2014Q2

REPORT INFORMATION
  Report Type: Spontaneous
  Country: US (occurrence: US)
  Receive Date: 20140513
  Receipt Date: 20140513
  Transmission Date: 20141212
  Serious: Yes (Hospitalization, Other)
  Sender: FDA-Public Use
  Company Number: US-ACTAVIS-2014-09821

PATIENT
  Age: 4 Year
  Sex: Female

DRUGS (4)
  1. VALPROIC ACID (UNKNOWN) [Suspect]
     Indication: COMPLEX PARTIAL SEIZURES
     Dosage: 60 MG/KG, DAILY
     Route: 065
  2. LACOSAMIDE [Interacting]
     Indication: COMPLEX PARTIAL SEIZURES
     Dosage: 25 MG, BID
     Route: 065
  3. LACOSAMIDE [Interacting]
     Dosage: 50 MG, BID
     Route: 065
  4. OXCARBAZEPINE [Concomitant]
     Indication: COMPLEX PARTIAL SEIZURES
     Dosage: 45 MG/KG, DAILY
     Route: 065

REACTIONS (6)
  - Hyperammonaemic encephalopathy [Recovered/Resolved]
  - Bone marrow failure [Recovered/Resolved]
  - Convulsion [Recovered/Resolved]
  - Anticonvulsant drug level increased [Recovered/Resolved]
  - Toxicity to various agents [Recovered/Resolved]
  - Drug interaction [Recovered/Resolved]
